FAERS Safety Report 8487120-X (Version None)
Quarter: 2012Q3

REPORT INFORMATION
  Report Type: 
  Country: None (occurrence: None)
  Receive Date: 20120704
  Receipt Date: 20120629
  Transmission Date: 20120928
  Serious: Yes (Hospitalization)
  Sender: FDA-Public Use
  Company Number: PHHY2012MX056432

PATIENT
  Sex: Female

DRUGS (3)
  1. ATARAX [Concomitant]
     Indication: ANXIETY
     Dates: start: 20100101
  2. STALEVO 100 [Suspect]
     Indication: PARKINSON'S DISEASE
     Dosage: 3 TABLETS (200/100/25 MG) DAILY
     Dates: start: 20070101
  3. PIASCLEDINE [Concomitant]
     Indication: ANXIETY
     Dates: start: 20100101

REACTIONS (4)
  - BALANCE DISORDER [None]
  - GAIT DISTURBANCE [None]
  - TREMOR [None]
  - DIZZINESS [None]
